FAERS Safety Report 23571695 (Version 2)
Quarter: 2024Q1

REPORT INFORMATION
  Report Type: Spontaneous
  Country: CN (occurrence: None)
  Receive Date: 20240227
  Receipt Date: 20240301
  Transmission Date: 20240409
  Serious: Yes (Other)
  Sender: FDA-Public Use
  Company Number: 2024A045140

PATIENT
  Age: 36 Year
  Sex: Female
  Weight: 53 kg

DRUGS (4)
  1. OLAPARIB [Suspect]
     Active Substance: OLAPARIB
     Indication: Ovarian cancer metastatic
     Dosage: 300 MG + 300 MG PER DAY
     Route: 048
     Dates: start: 20201222, end: 20201231
  2. OLAPARIB [Suspect]
     Active Substance: OLAPARIB
     Indication: Ovarian cancer metastatic
     Dosage: 300 MG + 150 MG PER DAY
     Route: 048
     Dates: start: 20210113, end: 202301
  3. OLAPARIB [Suspect]
     Active Substance: OLAPARIB
     Indication: Ovarian cancer metastatic
     Dosage: 300 MG + 150 MG PER DAY
     Route: 048
     Dates: start: 20230313, end: 2023
  4. OLAPARIB [Suspect]
     Active Substance: OLAPARIB
     Indication: Ovarian cancer metastatic
     Dosage: 300 MG + 300 MG PER DAY
     Route: 048
     Dates: start: 202310

REACTIONS (21)
  - Malignant neoplasm progression [Unknown]
  - Haemoglobin decreased [Unknown]
  - Neutrophil count decreased [Unknown]
  - Platelet count decreased [Unknown]
  - Fatigue [Unknown]
  - Incorrect dose administered [Unknown]
  - White blood cell count decreased [Unknown]
  - Red blood cell count decreased [Unknown]
  - Haematocrit decreased [Unknown]
  - Mean cell volume increased [Unknown]
  - Mean cell haemoglobin increased [Unknown]
  - Red cell distribution width increased [Unknown]
  - Platelet distribution width increased [Unknown]
  - Plateletcrit decreased [Unknown]
  - Mean platelet volume decreased [Unknown]
  - Lymphocyte count decreased [Unknown]
  - Eosinophil count decreased [Unknown]
  - Pulmonary calcification [Unknown]
  - Renal cyst [Unknown]
  - Drug resistance [Unknown]
  - Lymphadenopathy [Unknown]

NARRATIVE: CASE EVENT DATE: 20201201
